FAERS Safety Report 15372684 (Version 1)
Quarter: 2018Q3

REPORT INFORMATION
  Report Type: Spontaneous
  Country: TR (occurrence: TR)
  Receive Date: 20180912
  Receipt Date: 20180912
  Transmission Date: 20181010
  Serious: Yes (Death, Other)
  Sender: FDA-Public Use
  Company Number: TR-ALEXION PHARMACEUTICALS INC.-A201811706

PATIENT
  Age: 13 Year
  Sex: Female

DRUGS (3)
  1. SOLIRIS [Suspect]
     Active Substance: ECULIZUMAB
     Indication: OFF LABEL USE
  2. SOLIRIS [Suspect]
     Active Substance: ECULIZUMAB
     Indication: BLOOD DISORDER
  3. SOLIRIS [Suspect]
     Active Substance: ECULIZUMAB
     Indication: MULTIPLE ORGAN DYSFUNCTION SYNDROME
     Dosage: UNK, UNK
     Route: 065

REACTIONS (2)
  - Off label use [Unknown]
  - Bacteraemia [Fatal]
